FAERS Safety Report 10210712 (Version 2)
Quarter: 2014Q2

REPORT INFORMATION
  Report Type: Spontaneous
  Country: DK (occurrence: DK)
  Receive Date: 20140602
  Receipt Date: 20140602
  Transmission Date: 20141212
  Serious: Yes (Disabling)
  Sender: FDA-Public Use
  Company Number: PHHY2014DK050159

PATIENT
  Age: 17 Year
  Sex: Female
  Weight: 65 kg

DRUGS (1)
  1. MALONETTA [Suspect]
     Indication: CONTRACEPTION
     Dosage: 1 TABLET FOR 21 DAYS MONTHLY
     Route: 048
     Dates: start: 20101123, end: 20130223

REACTIONS (2)
  - Myalgia [Recovered/Resolved]
  - Arthralgia [Unknown]
